FAERS Safety Report 21448931 (Version 1)
Quarter: 2022Q4

REPORT INFORMATION
  Report Type: Spontaneous
  Country: US (occurrence: US)
  Receive Date: 20221013
  Receipt Date: 20221013
  Transmission Date: 20230113
  Serious: No
  Sender: FDA-Public Use
  Company Number: US-CIPLA LTD.-2022US04845

PATIENT
  Sex: Female

DRUGS (6)
  1. ALBUTEROL [Suspect]
     Active Substance: ALBUTEROL
     Indication: Product used for unknown indication
     Dosage: UNK (EVERY 4 HOURS TO 6 HOURS)
     Dates: start: 2021
  2. ALBUTEROL [Suspect]
     Active Substance: ALBUTEROL
     Dosage: UNK (EVERY 4 HOURS TO 6 HOURS)
     Dates: start: 2021
  3. ALBUTEROL [Suspect]
     Active Substance: ALBUTEROL
     Dosage: UNK (EVERY 4 HOURS TO 6 HOURS)
     Dates: start: 2021
  4. ALBUTEROL [Suspect]
     Active Substance: ALBUTEROL
     Dosage: UNK  (EVERY 4 HOURS TO 6 HOURS)
     Dates: start: 2021
  5. ALBUTEROL [Suspect]
     Active Substance: ALBUTEROL
     Dosage: UNK (EVERY 4 HOURS TO 6 HOURS)
     Dates: start: 2021
  6. ALBUTEROL [Suspect]
     Active Substance: ALBUTEROL
     Dosage: UNK (EVERY 4 HOURS TO 6 HOURS)
     Dates: start: 2021

REACTIONS (5)
  - Incorrect dose administered [Unknown]
  - Device delivery system issue [Unknown]
  - Device use issue [Unknown]
  - Product quality issue [Unknown]
  - Device issue [Unknown]

NARRATIVE: CASE EVENT DATE: 20220301
